FAERS Safety Report 9103920 (Version 3)
Quarter: 2013Q2

REPORT INFORMATION
  Report Type: Spontaneous
  Country: SE (occurrence: SE)
  Receive Date: 20130219
  Receipt Date: 20130410
  Transmission Date: 20140414
  Serious: Yes (Other)
  Sender: FDA-Public Use
  Company Number: SE-JNJFOC-20130203447

PATIENT
  Sex: Female

DRUGS (2)
  1. NICORETTE [Suspect]
     Indication: SMOKING CESSATION THERAPY
     Route: 045
     Dates: start: 1996
  2. UNKNOWN MEDICATION [Concomitant]
     Route: 065

REACTIONS (9)
  - Nicotine dependence [Not Recovered/Not Resolved]
  - Incorrect drug administration duration [Unknown]
  - Overdose [Unknown]
  - Withdrawal syndrome [Unknown]
  - Drug effect incomplete [Unknown]
  - Rhinorrhoea [Unknown]
  - Parosmia [Unknown]
  - Product quality issue [Unknown]
  - Product quality issue [None]
